FAERS Safety Report 8825074 (Version 3)
Quarter: 2012Q4

REPORT INFORMATION
  Report Type: 
  Country: JP (occurrence: JP)
  Receive Date: 20121004
  Receipt Date: 20121114
  Transmission Date: 20130627
  Serious: Yes (Hospitalization)
  Sender: FDA-Public Use
  Company Number: JP-ELI_LILLY_AND_COMPANY-JP201209008013

PATIENT
  Age: 72 Year
  Sex: Female
  Weight: 67 kg

DRUGS (11)
  1. CYMBALTA [Suspect]
     Indication: DIABETIC NEUROPATHY
     Dosage: 40 mg, qd
     Route: 048
     Dates: start: 20120614, end: 20120905
  2. CYMBALTA [Suspect]
     Dosage: 40 mg, qd
     Route: 048
     Dates: start: 201209, end: 20121010
  3. IRBETAN [Concomitant]
     Indication: HYPERTENSION
     Dosage: 100 mg, qd
     Route: 048
     Dates: start: 20100303, end: 201209
  4. NEUROTROPIN                        /06251301/ [Concomitant]
     Indication: SCIATICA
     Dosage: 4 IU, tid
     Route: 048
     Dates: start: 20100827, end: 201209
  5. EVISTA [Concomitant]
     Indication: OSTEOPOROSIS
     Dosage: 60 mg, qd
     Route: 048
     Dates: start: 20100908, end: 201209
  6. OPALMON [Concomitant]
     Indication: SPINAL COLUMN STENOSIS
     Dosage: 5 ug, tid
     Route: 048
     Dates: start: 20100827
  7. LYRICA [Concomitant]
     Indication: SCIATICA
     Dosage: 150 mg, bid
     Route: 048
     Dates: start: 20101112, end: 201209
  8. SHAKUYAKUKANZOTO [Concomitant]
     Indication: SCIATICA
     Dosage: 2.5 g, tid
     Route: 048
     Dates: start: 20120227, end: 201209
  9. JANUVIA [Concomitant]
     Indication: DIABETES MELLITUS
     Dosage: 50 mg, qd
     Route: 048
     Dates: start: 20110823
  10. LAXOBERON [Concomitant]
     Indication: CONSTIPATION
     Dosage: 20 DF, other
     Route: 048
     Dates: start: 20111121, end: 20120829
  11. ALOSENN                            /00476901/ [Concomitant]
     Indication: CONSTIPATION
     Dosage: 0.5 g, other
     Route: 048
     Dates: start: 20100519, end: 20120829

REACTIONS (1)
  - Hypokalaemia [Recovered/Resolved]
